FAERS Safety Report 5915879-1 (Version None)
Quarter: 2008Q4

REPORT INFORMATION
  Report Type: 
  Country: None (occurrence: None)
  Receive Date: 20081010
  Receipt Date: 20080926
  Transmission Date: 20090506
  Serious: Yes (Other)
  Sender: FDA-Public Use
  Company Number: CA-BAXTER-2008BH010314

PATIENT
  Age: 34 Year
  Sex: Male

DRUGS (2)
  1. GAMMAGARD LIQUID [Suspect]
     Indication: RAYNAUD'S PHENOMENON
     Route: 042
     Dates: start: 20080915, end: 20080915
  2. GAMMAGARD LIQUID [Suspect]
     Indication: OFF LABEL USE
     Route: 042
     Dates: start: 20080915, end: 20080915

REACTIONS (6)
  - ANAPHYLACTIC REACTION [None]
  - BLOOD PRESSURE INCREASED [None]
  - BURNING SENSATION [None]
  - ERYTHEMA [None]
  - HOT FLUSH [None]
  - NAUSEA [None]
